FAERS Safety Report 5239130-3 (Version None)
Quarter: 2007Q1

REPORT INFORMATION
  Report Type: 
  Country: None (occurrence: None)
  Receive Date: 20061208
  Receipt Date: 20050603
  Transmission Date: 20070707
  Serious: Yes (Other)
  Sender: FDA-Public Use
  Company Number: 2005UW07618

PATIENT
  Age: 38 Year
  Sex: Male
  Weight: 97.975 kg

DRUGS (3)
  1. CRESTOR [Suspect]
     Indication: BLOOD CHOLESTEROL INCREASED
     Dosage: 20 MG PO
     Route: 048
     Dates: start: 20040101
  2. CRESTOR [Suspect]
     Indication: BLOOD CHOLESTEROL INCREASED
     Dosage: 20 MG PO
     Route: 048
     Dates: start: 20040101, end: 20050301
  3. HYDROCHLOROTHIAZIDE [Concomitant]

REACTIONS (2)
  - CONTUSION [None]
  - HYPOAESTHESIA [None]
